FAERS Safety Report 5975128-5 (Version None)
Quarter: 2008Q4

REPORT INFORMATION
  Report Type: 
  Country: None (occurrence: None)
  Receive Date: 20081202
  Receipt Date: 20081124
  Transmission Date: 20090506
  Serious: Yes (Other)
  Sender: FDA-Public Use
  Company Number: US-BAYER-200814584BCC

PATIENT
  Age: 82 Year
  Sex: Female
  Weight: 64 kg

DRUGS (9)
  1. ALEVE (CAPLET) [Suspect]
     Indication: BACK PAIN
     Dosage: TOTAL DAILY DOSE: 440  MG  UNIT DOSE: 220 MG
     Route: 048
     Dates: start: 20081124, end: 20081124
  2. NORVASC [Concomitant]
  3. LEVOTHYROXINE SODIUM [Concomitant]
  4. GLUCOPHAGE [Concomitant]
  5. LISINOPRIL [Concomitant]
  6. ASPIRIN [Concomitant]
  7. VITAMIN B6 [Concomitant]
  8. VITAMIN B-12 [Concomitant]
  9. JANUVIA [Concomitant]

REACTIONS (1)
  - BLOOD PRESSURE INCREASED [None]
